FAERS Safety Report 18996611 (Version 1)
Quarter: 2021Q1

REPORT INFORMATION
  Report Type: Spontaneous
  Country: NL (occurrence: PL)
  Receive Date: 20210311
  Receipt Date: 20210311
  Transmission Date: 20210420
  Serious: Yes (Other)
  Sender: FDA-Public Use
  Company Number: PL-FRESENIUS KABI-FK202102330

PATIENT
  Age: 13 Year
  Sex: Male
  Weight: 41 kg

DRUGS (1)
  1. VANCOMYCIN KABI (NOT SPECIFIED) [Suspect]
     Active Substance: VANCOMYCIN
     Indication: CYSTIC FIBROSIS
     Route: 042
     Dates: start: 20181109, end: 20181109

REACTIONS (2)
  - Skin lesion [Recovering/Resolving]
  - Red man syndrome [Recovering/Resolving]

NARRATIVE: CASE EVENT DATE: 20181109
